FAERS Safety Report 8784266 (Version 2)
Quarter: 2012Q4

REPORT INFORMATION
  Report Type: 
  Country: US (occurrence: US)
  Receive Date: 20120913
  Receipt Date: 20121128
  Transmission Date: 20130627
  Serious: No
  Sender: FDA-Public Use
  Company Number: US-009507513-1209USA000919

PATIENT
  Age: 40 Year
  Sex: Male

DRUGS (1)
  1. EMEND [Suspect]
     Indication: PROPHYLAXIS OF NAUSEA AND VOMITING
     Dosage: 150 mg, UNK
     Route: 042
     Dates: start: 20120815

REACTIONS (3)
  - Burning sensation [Unknown]
  - Vein disorder [Unknown]
  - Vein discolouration [Unknown]
